FAERS Safety Report 4674003-6 (Version None)
Quarter: 2005Q2

REPORT INFORMATION
  Report Type: 
  Country: None (occurrence: None)
  Receive Date: 20050525
  Receipt Date: 20050512
  Transmission Date: 20051028
  Serious: Yes (Hospitalization)
  Sender: FDA-Public Use
  Company Number: 2005-05-0552

PATIENT
  Age: 56 Year
  Sex: Male

DRUGS (1)
  1. CLARITIN [Suspect]
     Dosage: 10 MG QD ORAL
     Route: 048
     Dates: start: 20050406, end: 20050413

REACTIONS (6)
  - CONFUSIONAL STATE [None]
  - CSF PROTEIN INCREASED [None]
  - ELECTROENCEPHALOGRAM ABNORMAL [None]
  - HEADACHE [None]
  - RED BLOOD CELLS CSF POSITIVE [None]
  - TACHYCARDIA [None]
